FAERS Safety Report 4360081-0 (Version None)
Quarter: 2004Q2

REPORT INFORMATION
  Report Type: 
  Country: None (occurrence: None)
  Receive Date: 20040514
  Receipt Date: 20040505
  Transmission Date: 20050107
  Serious: Yes (Disabling)
  Sender: FDA-Public Use
  Company Number: GB-JNJFOC-20040201239

PATIENT
  Age: 81 Year
  Sex: Female
  Weight: 85 kg

DRUGS (5)
  1. RISPERDAL CONSTA [Suspect]
     Indication: DELUSION
     Dosage: 25 MG, 1 IN 2 WEEK, INTRA-MUSCULAR
     Route: 030
     Dates: start: 20040206, end: 20040206
  2. AMOXICILLIN [Suspect]
     Dosage: 250 MG, ORAL
     Route: 048
  3. RISPEDAL CONSTA (RISPERIDONE) MICROSPHERES [Concomitant]
  4. RISPERDAL [Concomitant]
  5. THYROXINE (LEVOTHYROXINE SODIUM) [Concomitant]

REACTIONS (5)
  - ECZEMA [None]
  - EYELID OEDEMA [None]
  - FACE OEDEMA [None]
  - RASH [None]
  - RASH PRURITIC [None]
